FAERS Safety Report 9617940 (Version 2)
Quarter: 2013Q4

REPORT INFORMATION
  Report Type: Spontaneous
  Country: US (occurrence: US)
  Receive Date: 20131011
  Receipt Date: 20131017
  Transmission Date: 20140711
  Serious: Yes (Hospitalization, Other)
  Sender: FDA-Public Use
  Company Number: US-BAXTER-2013BAX039594

PATIENT
  Age: 72 Year
  Sex: Female

DRUGS (6)
  1. DIANEAL LOW CALCIUM [Suspect]
     Indication: RENAL FAILURE CHRONIC
     Route: 033
     Dates: start: 201304, end: 201309
  2. DIANEAL LOW CALCIUM [Suspect]
     Route: 033
     Dates: start: 20131002
  3. DIANEAL LOW CALCIUM [Suspect]
     Indication: RENAL FAILURE CHRONIC
     Route: 033
     Dates: start: 201304, end: 201309
  4. DIANEAL LOW CALCIUM [Suspect]
     Route: 033
     Dates: start: 20131002
  5. EXTRANEAL [Suspect]
     Indication: RENAL FAILURE CHRONIC
     Route: 033
     Dates: start: 201304, end: 201309
  6. EXTRANEAL [Suspect]
     Route: 033
     Dates: start: 20131002

REACTIONS (2)
  - Peritonitis [Recovering/Resolving]
  - Procedural pain [Recovered/Resolved]
